FAERS Safety Report 21782338 (Version 1)
Quarter: 2022Q4

REPORT INFORMATION
  Report Type: Spontaneous
  Country: US (occurrence: None)
  Receive Date: 20221227
  Receipt Date: 20221227
  Transmission Date: 20230112
  Serious: No
  Sender: FDA-Public Use
  Company Number: 2022A401713

PATIENT
  Sex: Female

DRUGS (1)
  1. BREZTRI [Suspect]
     Active Substance: BUDESONIDE\FORMOTEROL\GLYCOPYRROLATE
     Indication: Chronic obstructive pulmonary disease
     Dosage: 160/9/4.8 MCG, 2 INHALATIONS 2 TIMES A DAY,
     Route: 055

REACTIONS (3)
  - Visual impairment [Not Recovered/Not Resolved]
  - Tremor [Unknown]
  - Blood glucose abnormal [Unknown]
